FAERS Safety Report 18451393 (Version 4)
Quarter: 2021Q4

REPORT INFORMATION
  Report Type: Report from Study
  Country: CO (occurrence: CO)
  Receive Date: 20201102
  Receipt Date: 20211112
  Transmission Date: 20220304
  Serious: Yes (Hospitalization, Other)
  Sender: FDA-Public Use
  Company Number: NVSC2019CO041411

PATIENT
  Age: 58 Year
  Sex: Female
  Weight: 73 kg

DRUGS (9)
  1. KISQALI [Suspect]
     Active Substance: RIBOCICLIB
     Indication: Breast cancer metastatic
     Dosage: 600 MG, QD
     Route: 048
     Dates: start: 201903
  2. KISQALI [Suspect]
     Active Substance: RIBOCICLIB
     Dosage: 600 MG, QD
     Route: 048
     Dates: start: 20190716
  3. KISQALI [Suspect]
     Active Substance: RIBOCICLIB
     Dosage: 600 MG, QD
     Route: 048
     Dates: start: 201909
  4. KISQALI [Suspect]
     Active Substance: RIBOCICLIB
     Dosage: 600 MG, QD
     Route: 048
  5. KISQALI [Suspect]
     Active Substance: RIBOCICLIB
     Dosage: 2 YEARS AGO, 600 MG (TABLET OF 200 MG)
     Route: 048
  6. FEMARA [Suspect]
     Active Substance: LETROZOLE
     Indication: Breast cancer
     Dosage: 2.5 MG, QD
     Route: 048
     Dates: start: 201903
  7. FEMARA [Suspect]
     Active Substance: LETROZOLE
     Dosage: 2.5 MG, QD
     Route: 048
     Dates: start: 201909
  8. FEMARA [Suspect]
     Active Substance: LETROZOLE
     Dosage: 2 YEARS AGO, 2.5 MG
     Route: 048
  9. CALCIUM CARBONATE [Concomitant]
     Active Substance: CALCIUM CARBONATE
     Indication: Bone disorder
     Dosage: 200 MG, QD
     Route: 048

REACTIONS (15)
  - Malaise [Unknown]
  - Bone lesion [Unknown]
  - Metastases to bone [Unknown]
  - Arthralgia [Unknown]
  - Joint swelling [Unknown]
  - Skin disorder [Unknown]
  - Gastrointestinal disorder [Unknown]
  - Product supply issue [Unknown]
  - Fatigue [Unknown]
  - Diarrhoea [Unknown]
  - Insomnia [Unknown]
  - Rotator cuff syndrome [Unknown]
  - Pain in extremity [Unknown]
  - Inflammation [Unknown]
  - Asthenia [Unknown]

NARRATIVE: CASE EVENT DATE: 20200707
